FAERS Safety Report 6819006-8 (Version None)
Quarter: 2010Q3

REPORT INFORMATION
  Report Type: 
  Country: None (occurrence: None)
  Receive Date: 20100707
  Receipt Date: 20100628
  Transmission Date: 20110219
  Serious: Yes (Death, Hospitalization)
  Sender: FDA-Public Use
  Company Number: CN-TYCO HEALTHCARE/MALLINCKRODT-T201001480

PATIENT
  Sex: Male
  Weight: 54 kg

DRUGS (3)
  1. EXALGO [Suspect]
     Indication: CANCER PAIN
     Dosage: 5 MG, QD
     Route: 048
     Dates: start: 20100527, end: 20100612
  2. OXYCODONE HCL EXTENDED-RELEASE [Suspect]
     Indication: CANCER PAIN
     Dosage: UNK, BID
     Route: 048
     Dates: start: 20100527, end: 20100612
  3. PLACEBO [Suspect]
     Indication: CANCER PAIN
     Dosage: UNK
     Route: 048
     Dates: start: 20100527, end: 20100612

REACTIONS (3)
  - DYSPHAGIA [None]
  - INCOHERENT [None]
  - LOSS OF CONSCIOUSNESS [None]
